FAERS Safety Report 6931090-X (Version None)
Quarter: 2010Q3

REPORT INFORMATION
  Report Type: 
  Country: None (occurrence: None)
  Receive Date: 20100818
  Receipt Date: 20100809
  Transmission Date: 20110219
  Serious: Yes (Other)
  Sender: FDA-Public Use
  Company Number: US-AMGEN-TCS420507

PATIENT
  Sex: Female
  Weight: 58.1 kg

DRUGS (10)
  1. ENBREL [Suspect]
     Indication: RHEUMATOID ARTHRITIS
     Route: 058
     Dates: start: 20100526, end: 20100617
  2. METHOTREXATE [Concomitant]
  3. NEURONTIN [Concomitant]
  4. ACETAMINOPHEN [Concomitant]
  5. SPIRONOLACTONE [Concomitant]
  6. SKELAXIN [Concomitant]
  7. ASPIRIN [Concomitant]
  8. PREMARIN [Concomitant]
  9. LEUCOVORIN CALCIUM [Concomitant]
  10. SYNTHROID [Concomitant]

REACTIONS (4)
  - DYSPNOEA [None]
  - PRURITUS [None]
  - THROAT IRRITATION [None]
  - THROAT TIGHTNESS [None]
